FAERS Safety Report 9296252 (Version 1)
Quarter: 2013Q2

REPORT INFORMATION
  Report Type: Spontaneous
  Country: IT (occurrence: IT)
  Receive Date: 20130517
  Receipt Date: 20130517
  Transmission Date: 20140414
  Serious: Yes (Other)
  Sender: FDA-Public Use
  Company Number: IT-VIIV HEALTHCARE LIMITED-B0892481A

PATIENT
  Age: 39 Year
  Sex: Male

DRUGS (3)
  1. KIVEXA [Suspect]
     Indication: PRODUCT USED FOR UNKNOWN INDICATION
     Dosage: 300MG PER DAY
     Route: 065
     Dates: start: 20130214, end: 20130415
  2. REMERON [Concomitant]
     Indication: PSYCHOTIC DISORDER
     Route: 065
  3. REYATAZ [Concomitant]
     Indication: HIV INFECTION
     Dosage: 300MG PER DAY
     Route: 065
     Dates: start: 20060905, end: 20130415

REACTIONS (1)
  - Hepatitis acute [Not Recovered/Not Resolved]
